FAERS Safety Report 4281474-6 (Version None)
Quarter: 2004Q1

REPORT INFORMATION
  Report Type: 
  Country: None (occurrence: None)
  Receive Date: 20040108
  Receipt Date: 20030529
  Transmission Date: 20041129
  Serious: Yes (Hospitalization)
  Sender: FDA-Public Use
  Company Number: HQWYE416730MAY03

PATIENT
  Age: 72 Year
  Sex: Female
  Weight: 59.02 kg

DRUGS (4)
  1. PREMPRO [Suspect]
     Indication: MENOPAUSE
     Dosage: 1 TABLET DAILY; 0.625MG, ORAL
     Route: 048
     Dates: start: 19950101, end: 20021101
  2. SYNTHROID (LEVOTHRYOXINE SODIUM) [Concomitant]
  3. PAMINE (HYOSCINE METHOBROMIDE) [Concomitant]
  4. LIPITOR [Concomitant]

REACTIONS (1)
  - DEEP VEIN THROMBOSIS [None]
